FAERS Safety Report 6031516-2 (Version None)
Quarter: 2008Q4

REPORT INFORMATION
  Report Type: 
  Country: None (occurrence: None)
  Receive Date: 20081222
  Receipt Date: 20081022
  Transmission Date: 20090506
  Serious: No
  Sender: FDA-Public Use
  Company Number: US-WYE-H06528908

PATIENT
  Age: 53 Year
  Sex: Female
  Weight: 66.74 kg

DRUGS (7)
  1. PRISTIQ [Suspect]
     Indication: DEPRESSION
     Dosage: 50 MG 1X PER 1 DAY, ORAL
     Route: 048
     Dates: start: 20081017
  2. NAPROSYN [Concomitant]
  3. TOPAMAX [Concomitant]
  4. ZANAFLEX [Concomitant]
  5. CARAFATE [Concomitant]
  6. NEXIUM [Concomitant]
  7. MS CONTIN [Concomitant]

REACTIONS (4)
  - FATIGUE [None]
  - NAUSEA [None]
  - SOMNOLENCE [None]
  - VOMITING [None]
